FAERS Safety Report 18061137 (Version 2)
Quarter: 2020Q3

REPORT INFORMATION
  Report Type: Spontaneous
  Country: US (occurrence: US)
  Receive Date: 20200723
  Receipt Date: 20200824
  Transmission Date: 20201103
  Serious: Yes (Death, Other)
  Sender: FDA-Public Use
  Company Number: US-GILEAD-2020-0484791

PATIENT
  Age: 80 Year
  Sex: Female
  Weight: 68.3 kg

DRUGS (5)
  1. PRECEDEX [Concomitant]
     Active Substance: DEXMEDETOMIDINE HYDROCHLORIDE
     Indication: ANXIETY
     Dosage: UNK
     Dates: end: 20200715
  2. DECADRON [Concomitant]
     Active Substance: DEXAMETHASONE
  3. PLASMA [Concomitant]
     Active Substance: HUMAN PLASMA
     Dosage: UNK
     Dates: start: 20200711, end: 20200711
  4. OXYGEN. [Concomitant]
     Active Substance: OXYGEN
  5. REMDESIVIR. [Suspect]
     Active Substance: REMDESIVIR
     Indication: COVID-19
     Dosage: 200 MG, QD
     Route: 042
     Dates: start: 20200710, end: 20200711

REACTIONS (6)
  - Liver function test increased [Unknown]
  - COVID-19 pneumonia [Fatal]
  - Tachycardia [Not Recovered/Not Resolved]
  - Dyspnoea [Not Recovered/Not Resolved]
  - Acute respiratory distress syndrome [Fatal]
  - Tachypnoea [Not Recovered/Not Resolved]
